FAERS Safety Report 17395108 (Version 1)
Quarter: 2020Q1

REPORT INFORMATION
  Report Type: Spontaneous
  Country: SE (occurrence: SE)
  Receive Date: 20200210
  Receipt Date: 20200210
  Transmission Date: 20200409
  Serious: Yes (Hospitalization)
  Sender: FDA-Public Use
  Company Number: SE-ACCORD-171977

PATIENT
  Age: 68 Year
  Sex: Female

DRUGS (7)
  1. CANDESARTAN. [Concomitant]
     Active Substance: CANDESARTAN
     Dates: start: 20190204
  2. ESOMEPRAZOLE/ESOMEPRAZOLE MAGNESIUM/ESOMEPRAZOLE SODIUM [Suspect]
     Active Substance: ESOMEPRAZOLE
     Indication: GASTROINTESTINAL HAEMORRHAGE
     Route: 048
     Dates: start: 20190701, end: 20190910
  3. ATORVASTATIN [Concomitant]
     Active Substance: ATORVASTATIN
     Dates: start: 20190205
  4. TROMBYL [Concomitant]
     Active Substance: ASPIRIN
     Dates: start: 20180730
  5. PANTOPRAZOLE [Suspect]
     Active Substance: PANTOPRAZOLE
     Indication: GASTROINTESTINAL HAEMORRHAGE
     Route: 048
     Dates: start: 20190910, end: 20191220
  6. SELOKENZOC [Concomitant]
     Active Substance: METOPROLOL SUCCINATE
     Dates: start: 20140131
  7. AMLODIPINE [Concomitant]
     Active Substance: AMLODIPINE BESYLATE
     Dates: start: 20190225

REACTIONS (2)
  - Off label use [Unknown]
  - Tinnitus [Recovered/Resolved]

NARRATIVE: CASE EVENT DATE: 20190702
